FAERS Safety Report 7142574-6 (Version None)
Quarter: 2010Q4

REPORT INFORMATION
  Report Type: 
  Country: None (occurrence: None)
  Receive Date: 20101207
  Receipt Date: 20101125
  Transmission Date: 20110411
  Serious: Yes (Other)
  Sender: FDA-Public Use
  Company Number: FR-PFIZER INC-2010164191

PATIENT
  Age: 37 Year
  Sex: Male

DRUGS (2)
  1. AMLOR [Suspect]
     Dosage: 10 MG, UNK
     Route: 048
  2. OLMESARTAN MEDOXOMIL AND HYDROCHLOROTHIZIDE [Suspect]
     Indication: HYPERTENSION
     Dosage: 20/12.5 MG
     Route: 048

REACTIONS (1)
  - AZOOSPERMIA [None]
